FAERS Safety Report 8961263 (Version 1)
Quarter: 2012Q4

REPORT INFORMATION
  Report Type: 
  Country: US (occurrence: US)
  Receive Date: 20121212
  Receipt Date: 20121212
  Transmission Date: 20130627
  Serious: Yes (Hospitalization)
  Sender: FDA-Public Use
  Company Number: US-UCBSA-072785

PATIENT
  Age: 41 Year
  Sex: Female

DRUGS (4)
  1. VIMPAT [Suspect]
     Indication: EPILEPSY
  2. TOPAMAX [Concomitant]
     Dosage: DAILY DOSE: 300 MG (100 MG Q AM, 200 MG Q PM)
  3. CHILDREN^S VITAMIN [Concomitant]
     Dosage: DAILY
  4. SYNTHROID [Concomitant]

REACTIONS (4)
  - Abscess [Unknown]
  - Haemoglobin decreased [Recovered/Resolved]
  - Haematocrit decreased [Recovered/Resolved]
  - Influenza [Recovering/Resolving]
